FAERS Safety Report 24014321 (Version 1)
Quarter: 2024Q2

REPORT INFORMATION
  Report Type: Spontaneous
  Country: AU (occurrence: AU)
  Receive Date: 20240626
  Receipt Date: 20240626
  Transmission Date: 20240716
  Serious: Yes (Other)
  Sender: FDA-Public Use
  Company Number: AU-002147023-NVSC2024AU116597

PATIENT
  Sex: Female

DRUGS (1)
  1. LEQVIO [Suspect]
     Active Substance: INCLISIRAN SODIUM
     Indication: Low density lipoprotein increased
     Dosage: UNK (TO ABDOMEN)
     Route: 065
     Dates: start: 20240530

REACTIONS (6)
  - Rash [Not Recovered/Not Resolved]
  - Headache [Recovered/Resolved]
  - Blood pressure increased [Recovered/Resolved]
  - Eye haemorrhage [Recovered/Resolved]
  - Swelling face [Unknown]
  - Pruritus [Unknown]
